FAERS Safety Report 18157908 (Version 3)
Quarter: 2024Q1

REPORT INFORMATION
  Report Type: Spontaneous
  Country: US (occurrence: US)
  Receive Date: 20200817
  Receipt Date: 20240212
  Transmission Date: 20240409
  Serious: Yes (Hospitalization, Other)
  Sender: FDA-Public Use
  Company Number: US-GILEAD-2020-0489137

PATIENT
  Age: 44 Year
  Sex: Male
  Weight: 84.354 kg

DRUGS (100)
  1. ATRIPLA [Suspect]
     Active Substance: EFAVIRENZ\EMTRICITABINE\TENOFOVIR DISOPROXIL FUMARATE
     Indication: HIV infection
     Dosage: UNK
     Route: 048
     Dates: start: 2007
  2. ATRIPLA [Suspect]
     Active Substance: EFAVIRENZ\EMTRICITABINE\TENOFOVIR DISOPROXIL FUMARATE
     Dosage: UNK
     Route: 048
     Dates: start: 20110423, end: 20141003
  3. ATRIPLA [Suspect]
     Active Substance: EFAVIRENZ\EMTRICITABINE\TENOFOVIR DISOPROXIL FUMARATE
     Dosage: UNK
     Route: 048
     Dates: start: 20110823, end: 20141003
  4. DESCOVY [Concomitant]
     Active Substance: EMTRICITABINE\TENOFOVIR ALAFENAMIDE FUMARATE
  5. PREDNISONE [Concomitant]
     Active Substance: PREDNISONE
  6. METFORMIN [Concomitant]
     Active Substance: METFORMIN HYDROCHLORIDE
  7. GLIPIZIDE [Concomitant]
     Active Substance: GLIPIZIDE
  8. LISINOPRIL [Concomitant]
     Active Substance: LISINOPRIL
  9. CRIXIVAN [Concomitant]
     Active Substance: INDINAVIR SULFATE
  10. EPIVIR [Concomitant]
     Active Substance: LAMIVUDINE
  11. TRIUMEQ [Concomitant]
     Active Substance: ABACAVIR SULFATE\DOLUTEGRAVIR SODIUM\LAMIVUDINE
  12. ACARBOSE [Concomitant]
     Active Substance: ACARBOSE
  13. ACETAMINOPHEN [Concomitant]
     Active Substance: ACETAMINOPHEN
  14. ACYCLOVIR [Concomitant]
     Active Substance: ACYCLOVIR
  15. ALENDRONATE SODIUM [Concomitant]
     Active Substance: ALENDRONATE SODIUM
  16. ALENDRONATE [Concomitant]
     Active Substance: ALENDRONATE SODIUM
  17. ALLOPURINOL [Concomitant]
     Active Substance: ALLOPURINOL
  18. ALPRAZOLAM [Concomitant]
     Active Substance: ALPRAZOLAM
  19. ALUMINUM HYDROXIDE\DIMETHICONE\MAGNESIUM HYDROXIDE [Concomitant]
     Active Substance: ALUMINUM HYDROXIDE\DIMETHICONE\MAGNESIUM HYDROXIDE
  20. AMOXICILLIN [Concomitant]
     Active Substance: AMOXICILLIN
  21. ARIPIPRAZOLE [Concomitant]
     Active Substance: ARIPIPRAZOLE
  22. ASCORBIC ACID [Concomitant]
     Active Substance: ASCORBIC ACID
  23. ASPIRIN [Concomitant]
     Active Substance: ASPIRIN
  24. ATORVASTATIN CALCIUM [Concomitant]
     Active Substance: ATORVASTATIN CALCIUM
  25. AZITHROMYCIN [Concomitant]
     Active Substance: AZITHROMYCIN
  26. BACITRACIN AND POLYMYXIN B SULFATE [Concomitant]
     Active Substance: BACITRACIN\POLYMYXIN B SULFATE
  27. BENZONATATE [Concomitant]
     Active Substance: BENZONATATE
  28. BENZOYL PEROXIDE [Concomitant]
     Active Substance: BENZOYL PEROXIDE
  29. BENZTROPINE [Concomitant]
     Active Substance: BENZTROPINE
  30. BISACODYL [Concomitant]
     Active Substance: BISACODYL
  31. BUSPIRONE [Concomitant]
     Active Substance: BUSPIRONE HYDROCHLORIDE
  32. BUTALBITAL [Concomitant]
     Active Substance: BUTALBITAL
  33. CALAMINE [CALAMINE;DIPHENHYDRAMINE HYDROCHLORIDE] [Concomitant]
  34. CALCIUM CARBONATE [Concomitant]
     Active Substance: CALCIUM CARBONATE
  35. CALCIUM POLYCARBOPHIL [Concomitant]
     Active Substance: CALCIUM POLYCARBOPHIL
  36. CALCIUM [Concomitant]
     Active Substance: CALCIUM
  37. VITAMIN D NOS [Concomitant]
     Active Substance: VITAMIN D NOS
  38. CARBAMAZEPINE [Concomitant]
     Active Substance: CARBAMAZEPINE
  39. CEFPROZIL [Concomitant]
     Active Substance: CEFPROZIL
  40. CEFTRIAXONE [Concomitant]
     Active Substance: CEFTRIAXONE\CEFTRIAXONE SODIUM
  41. CEPHALEXIN [Concomitant]
     Active Substance: CEPHALEXIN
  42. CETIRIZINE [Concomitant]
     Active Substance: CETIRIZINE HYDROCHLORIDE
  43. VITAMIN D3 [Concomitant]
     Active Substance: CHOLECALCIFEROL
  44. CHROMIUM [Concomitant]
     Active Substance: CHROMIC CHLORIDE\CHROMIUM
  45. CHROMIUM PICOLINATE [Concomitant]
     Active Substance: CHROMIUM PICOLINATE
  46. CICLOPIROX [Concomitant]
     Active Substance: CICLOPIROX\TOCOPHEROL
  47. CIPROFLOXACIN [Concomitant]
     Active Substance: CIPROFLOXACIN
  48. CLINDAMYCIN [Concomitant]
     Active Substance: CLINDAMYCIN
  49. CLONAZEPAM [Concomitant]
     Active Substance: CLONAZEPAM
  50. CLONIDINE [Concomitant]
     Active Substance: CLONIDINE
  51. CLOTRIMAZOLE [Concomitant]
     Active Substance: CLOTRIMAZOLE
  52. ACETAMINOPHEN\CODEINE PHOSPHATE [Concomitant]
     Active Substance: ACETAMINOPHEN\CODEINE PHOSPHATE
  53. CREON [Concomitant]
     Active Substance: PANCRELIPASE AMYLASE\PANCRELIPASE LIPASE\PANCRELIPASE PROTEASE
  54. CROTAMITON [Concomitant]
     Active Substance: CROTAMITON
  55. CYCLOBENZAPRINE HYDROCHLORIDE [Concomitant]
     Active Substance: CYCLOBENZAPRINE HYDROCHLORIDE
  56. DEXTROSE [Concomitant]
     Active Substance: DEXTROSE\DEXTROSE MONOHYDRATE
  57. ATROPINE\DIPHENOXYLATE [Concomitant]
     Active Substance: ATROPINE\DIPHENOXYLATE
  58. DIVALPROEX SODIUM [Concomitant]
     Active Substance: DIVALPROEX SODIUM
  59. GUAIFENESIN DM [Concomitant]
     Active Substance: DEXTROMETHORPHAN\DEXTROMETHORPHAN HYDROBROMIDE\GUAIFENESIN
  60. DOCUSATE [Concomitant]
     Active Substance: DOCUSATE
  61. DOXAZOSIN [Concomitant]
     Active Substance: DOXAZOSIN MESYLATE
  62. DOXAZOSIN MESYLATE [Concomitant]
     Active Substance: DOXAZOSIN MESYLATE
  63. DOXEPIN HCL [Concomitant]
     Active Substance: DOXEPIN HYDROCHLORIDE
  64. DOXYCYCLINE [Concomitant]
     Active Substance: DOXYCYCLINE
  65. DOXYCYCLINE HYCLATE [Concomitant]
     Active Substance: DOXYCYCLINE HYCLATE
  66. DOXYCYCLINE [Concomitant]
     Active Substance: DOXYCYCLINE
  67. ETODOLAC [Concomitant]
     Active Substance: ETODOLAC
  68. FAMOTIDINE [Concomitant]
     Active Substance: FAMOTIDINE
  69. PEPCID [Concomitant]
     Active Substance: FAMOTIDINE
  70. FENOFIBRATE [Concomitant]
     Active Substance: FENOFIBRATE
  71. FEXOFENADINE [Concomitant]
     Active Substance: FEXOFENADINE HYDROCHLORIDE
  72. FIDAXOMICIN [Concomitant]
     Active Substance: FIDAXOMICIN
  73. FINASTERIDE [Concomitant]
     Active Substance: FINASTERIDE
  74. FISH OIL [Concomitant]
     Active Substance: FISH OIL
  75. FLUNISOLIDE [Concomitant]
     Active Substance: FLUNISOLIDE
  76. FLUTICASONE PROPIONATE [Concomitant]
     Active Substance: FLUTICASONE PROPIONATE
  77. FOLIC ACID [Concomitant]
     Active Substance: FOLIC ACID
  78. GABAPENTIN [Concomitant]
     Active Substance: GABAPENTIN
  79. GEMFIBROZIL [Concomitant]
     Active Substance: GEMFIBROZIL
  80. DEXTROSE [Concomitant]
     Active Substance: DEXTROSE\DEXTROSE MONOHYDRATE
  81. HYDROCORTISONE/PRAMOXINE [HYDROCORTISONE;PRAMOCAINE] [Concomitant]
  82. AQUAPHOR [MINERAL WAX;PARAFFIN, LIQUID;PETROLATUM;WOOL ALCOHOLS] [Concomitant]
  83. HYDROXYZINE PAMOATE [Concomitant]
     Active Substance: HYDROXYZINE PAMOATE
  84. IBUPROFEN [Concomitant]
     Active Substance: IBUPROFEN
  85. INFLUENZA VIRUS VACCINE [Concomitant]
     Active Substance: INFLUENZA VIRUS VACCINE
  86. INSULIN GLARGINE [Concomitant]
     Active Substance: INSULIN GLARGINE
  87. INSULIN LISPRO [Concomitant]
     Active Substance: INSULIN LISPRO
  88. INSULIN NOS [Concomitant]
     Active Substance: INSULIN NOS
  89. INSULIN ASPART [Concomitant]
     Active Substance: INSULIN ASPART
  90. INSULIN DETEMIR [Concomitant]
     Active Substance: INSULIN DETEMIR
  91. IPRATROPIUM [Concomitant]
     Active Substance: IPRATROPIUM
  92. LORATADINE [Concomitant]
     Active Substance: LORATADINE
  93. CLARITIN [Concomitant]
     Active Substance: LORATADINE
  94. LURASIDONE [Concomitant]
     Active Substance: LURASIDONE
  95. MAGNESIUM CITRATE [Concomitant]
     Active Substance: MAGNESIUM CITRATE
  96. MAGNESIUM HYDROXIDE [Concomitant]
     Active Substance: MAGNESIUM HYDROXIDE
  97. MAGNESIUM SULFATE [Concomitant]
     Active Substance: MAGNESIUM SULFATE\MAGNESIUM SULFATE HEPTAHYDRATE
  98. MECLIZINE HYDROCHLORIDE [Concomitant]
     Active Substance: MECLIZINE HYDROCHLORIDE
  99. MELATONIN [Concomitant]
     Active Substance: MELATONIN
  100. METHOCARBAMOL [Concomitant]
     Active Substance: METHOCARBAMOL

REACTIONS (10)
  - Renal failure [Not Recovered/Not Resolved]
  - Chronic kidney disease [Not Recovered/Not Resolved]
  - Acute kidney injury [Recovered/Resolved]
  - Dizziness [Recovered/Resolved]
  - Nephrolithiasis [Not Recovered/Not Resolved]
  - Renal impairment [Unknown]
  - Pain [Unknown]
  - Anxiety [Unknown]
  - Fatigue [Unknown]
  - Emotional distress [Unknown]

NARRATIVE: CASE EVENT DATE: 20140930
